APPROVED DRUG PRODUCT: AMINOSYN II 7% W/ ELECTROLYTES
Active Ingredient: AMINO ACIDS; MAGNESIUM CHLORIDE; POTASSIUM CHLORIDE; POTASSIUM PHOSPHATE, DIBASIC; SODIUM CHLORIDE
Strength: 7%;102MG/100ML;45MG/100ML;522MG/100ML;410MG/100ML
Dosage Form/Route: INJECTABLE;INJECTION
Application: N019437 | Product #006
Applicant: ICU MEDICAL INC
Approved: Apr 3, 1986 | RLD: No | RS: No | Type: DISCN